FAERS Safety Report 9995050 (Version 5)
Quarter: 2014Q2

REPORT INFORMATION
  Report Type: Spontaneous
  Country: US (occurrence: US)
  Receive Date: 20140311
  Receipt Date: 20140501
  Transmission Date: 20141212
  Serious: Yes (Hospitalization, Other)
  Sender: FDA-Public Use
  Company Number: US-BAXTER-2014BAX011874

PATIENT
  Sex: Male

DRUGS (5)
  1. DIANEAL PD2 [Suspect]
     Indication: PERITONEAL DIALYSIS
     Route: 033
  2. DIANEAL PD2 [Suspect]
     Indication: PERITONEAL DIALYSIS
     Route: 033
  3. VANCOMYCIN [Suspect]
     Indication: PERITONITIS
     Route: 042
  4. VANCOMYCIN [Suspect]
     Route: 033
     Dates: start: 20140309, end: 20140316
  5. VALTREX [Suspect]
     Indication: PRODUCT USED FOR UNKNOWN INDICATION

REACTIONS (18)
  - Localised infection [Unknown]
  - Tremor [Unknown]
  - Burning sensation [Unknown]
  - Hallucination [Unknown]
  - Amnesia [Unknown]
  - Overdose [Unknown]
  - Dysarthria [Unknown]
  - Pain in extremity [Unknown]
  - Cellulitis [Unknown]
  - Fungal infection [Unknown]
  - Dizziness [Unknown]
  - Pruritus [Unknown]
  - Peritonitis bacterial [Recovered/Resolved]
  - Abdominal pain [Unknown]
  - Somnolence [Unknown]
  - Insomnia [Unknown]
  - Impaired healing [Not Recovered/Not Resolved]
  - Constipation [Unknown]
